FAERS Safety Report 11197344 (Version 1)
Quarter: 2015Q2

REPORT INFORMATION
  Report Type: Spontaneous
  Country: CA (occurrence: CA)
  Receive Date: 20150617
  Receipt Date: 20150617
  Transmission Date: 20150821
  Serious: Yes (Hospitalization, Other)
  Sender: FDA-Public Use
  Company Number: CA-B.I. PHARMACEUTICALS,INC./RIDGEFIELD-2015-BI-31905CN

PATIENT
  Age: 92 Year
  Sex: Male

DRUGS (3)
  1. FLOMAX [Suspect]
     Active Substance: TAMSULOSIN HYDROCHLORIDE
     Indication: PRODUCT USED FOR UNKNOWN INDICATION
     Dosage: FORMULATION: TABLET (EXTENDED RELEASE)
     Route: 065
  2. LUPRON DEPOT [Suspect]
     Active Substance: LEUPROLIDE ACETATE
     Indication: PROSTATE CANCER
     Dosage: FORMULATION: POWDER FOR SUSPENSION, SUSTAINED RELEASE
     Route: 030
  3. HYDROCHLOROTHIAZIDE. [Suspect]
     Active Substance: HYDROCHLOROTHIAZIDE
     Indication: PRODUCT USED FOR UNKNOWN INDICATION
     Route: 065

REACTIONS (12)
  - Asthenia [Unknown]
  - Hypotension [Unknown]
  - Cardiomegaly [Unknown]
  - Aortic stenosis [Unknown]
  - Pleural effusion [Unknown]
  - Pulmonary oedema [Unknown]
  - Atelectasis [Unknown]
  - Lung disorder [Unknown]
  - Ejection fraction abnormal [Unknown]
  - Cardiac failure congestive [Unknown]
  - Acute kidney injury [Unknown]
  - Lung consolidation [Unknown]
